FAERS Safety Report 17453427 (Version 3)
Quarter: 2020Q1

REPORT INFORMATION
  Report Type: Spontaneous
  Country: US (occurrence: US)
  Receive Date: 20200224
  Receipt Date: 20200318
  Transmission Date: 20200409
  Serious: Yes (Death, Life-Threatening, Hospitalization, Other)
  Sender: FDA-Public Use
  Company Number: US-BAYER-2020-025305

PATIENT
  Age: 40 Year
  Sex: Male
  Weight: 82.7 kg

DRUGS (24)
  1. ALIQOPA [Suspect]
     Active Substance: COPANLISIB
     Indication: BURKITT^S LYMPHOMA RECURRENT
     Dosage: 60 MG 2 DOSES PER CYL
     Route: 042
     Dates: end: 20200131
  2. CYCLOPHOSPHAMIDE;DOXORUBICIN;ETOPOSIDE;PREDNISONE;RITUXIMAB;VINCRI [Concomitant]
     Indication: BURKITT^S LYMPHOMA RECURRENT
     Dosage: 10 MG/M2, CONT OVER 24 HOURS
     Route: 042
     Dates: start: 20200131, end: 20200204
  3. CYCLOPHOSPHAMIDE;DOXORUBICIN;ETOPOSIDE;PREDNISONE;RITUXIMAB;VINCRI [Concomitant]
     Indication: BURKITT^S LYMPHOMA RECURRENT
     Dosage: 750 MG/M2
     Route: 042
     Dates: start: 20200110, end: 20200114
  4. ALIQOPA [Suspect]
     Active Substance: COPANLISIB
     Indication: BURKITT^S LYMPHOMA RECURRENT
     Dosage: 60 MG 2 DOSES PER CYL
     Route: 042
     Dates: start: 20191218
  5. CYCLOPHOSPHAMIDE;DOXORUBICIN;ETOPOSIDE;PREDNISONE;RITUXIMAB;VINCRI [Concomitant]
     Indication: BURKITT^S LYMPHOMA RECURRENT
     Dosage: 10 MG/M2, CONT OVER 24 HOURS
     Route: 042
     Dates: start: 20191213, end: 20191218
  6. NEULASTA [Concomitant]
     Active Substance: PEGFILGRASTIM
     Dosage: 6 MCG (DAY 6)
  7. CYCLOPHOSPHAMIDE;DOXORUBICIN;ETOPOSIDE;PREDNISONE;RITUXIMAB;VINCRI [Concomitant]
     Indication: BURKITT^S LYMPHOMA RECURRENT
     Dosage: 10 MG/M2, CONT OVER 24 HOURS
     Route: 042
     Dates: start: 20200110, end: 20200114
  8. CYCLOPHOSPHAMIDE;DOXORUBICIN;ETOPOSIDE;PREDNISONE;RITUXIMAB;VINCRI [Concomitant]
     Indication: BURKITT^S LYMPHOMA RECURRENT
     Dosage: 50 MG/M2, CONT OVER 24 HOURS
     Route: 042
     Dates: start: 20200110, end: 20200114
  9. CYCLOPHOSPHAMIDE;DOXORUBICIN;ETOPOSIDE;PREDNISONE;RITUXIMAB;VINCRI [Concomitant]
     Indication: BURKITT^S LYMPHOMA RECURRENT
     Dosage: 375 MG/M2
     Route: 042
     Dates: start: 20191213, end: 20191218
  10. CYCLOPHOSPHAMIDE;DOXORUBICIN;ETOPOSIDE;PREDNISONE;RITUXIMAB;VINCRI [Concomitant]
     Indication: BURKITT^S LYMPHOMA RECURRENT
     Dosage: 60 MG/M2, BID ON DAYS 1, 2, 3, 4, AND 5
     Route: 048
     Dates: start: 20200110, end: 20200114
  11. CYCLOPHOSPHAMIDE;DOXORUBICIN;ETOPOSIDE;PREDNISONE;RITUXIMAB;VINCRI [Concomitant]
     Indication: BURKITT^S LYMPHOMA RECURRENT
     Dosage: 60 MG/M2, BID ON DAYS 1, 2, 3, 4, AND 5
     Route: 048
     Dates: start: 20191213, end: 20191218
  12. CYCLOPHOSPHAMIDE;DOXORUBICIN;ETOPOSIDE;PREDNISONE;RITUXIMAB;VINCRI [Concomitant]
     Indication: BURKITT^S LYMPHOMA RECURRENT
     Dosage: 375 MG/M2
     Route: 042
     Dates: start: 20200131, end: 20200204
  13. CYCLOPHOSPHAMIDE;DOXORUBICIN;ETOPOSIDE;PREDNISONE;RITUXIMAB;VINCRI [Concomitant]
     Indication: BURKITT^S LYMPHOMA RECURRENT
     Dosage: 750 MG/M2
     Route: 042
     Dates: start: 20191213, end: 20191218
  14. CYCLOPHOSPHAMIDE;DOXORUBICIN;ETOPOSIDE;PREDNISONE;RITUXIMAB;VINCRI [Concomitant]
     Indication: BURKITT^S LYMPHOMA RECURRENT
     Dosage: 60 MG/M2, BID ON DAYS 1, 2, 3, 4, AND 5
     Route: 048
     Dates: start: 20200131, end: 20200204
  15. CYCLOPHOSPHAMIDE;DOXORUBICIN;ETOPOSIDE;PREDNISONE;RITUXIMAB;VINCRI [Concomitant]
     Indication: BURKITT^S LYMPHOMA RECURRENT
     Dosage: 50 MG/M2, CONT OVER 24 HOURS
     Route: 042
     Dates: start: 20191213, end: 20191218
  16. CYCLOPHOSPHAMIDE;DOXORUBICIN;ETOPOSIDE;PREDNISONE;RITUXIMAB;VINCRI [Concomitant]
     Indication: BURKITT^S LYMPHOMA RECURRENT
     Dosage: 50 MG/M2, CONT OVER 24 HOURS
     Route: 042
     Dates: start: 20200131, end: 20200204
  17. ONDANSETRON [Concomitant]
     Active Substance: ONDANSETRON
     Dosage: 24 MG
     Route: 048
  18. ALIQOPA [Suspect]
     Active Substance: COPANLISIB
     Indication: BURKITT^S LYMPHOMA RECURRENT
     Dosage: 60 MG 2 DOSES PER CYL
     Route: 042
  19. CYCLOPHOSPHAMIDE;DOXORUBICIN;ETOPOSIDE;PREDNISONE;RITUXIMAB;VINCRI [Concomitant]
     Indication: BURKITT^S LYMPHOMA RECURRENT
     Dosage: 0.4 MG/M2, CONT OVER 24 HOURS
     Route: 042
     Dates: start: 20200110, end: 20200114
  20. SALINE [SODIUM CHLORIDE] [Concomitant]
     Active Substance: SODIUM CHLORIDE
     Dosage: 500 MG
     Route: 042
  21. CYCLOPHOSPHAMIDE;DOXORUBICIN;ETOPOSIDE;PREDNISONE;RITUXIMAB;VINCRI [Concomitant]
     Indication: BURKITT^S LYMPHOMA RECURRENT
     Dosage: 375 MG/M2
     Route: 042
     Dates: start: 20200110, end: 20200114
  22. CYCLOPHOSPHAMIDE;DOXORUBICIN;ETOPOSIDE;PREDNISONE;RITUXIMAB;VINCRI [Concomitant]
     Indication: BURKITT^S LYMPHOMA RECURRENT
     Dosage: 0.4 MG/M2, CONT OVER 24 HOURS
     Route: 042
     Dates: start: 20191213, end: 20191218
  23. CYCLOPHOSPHAMIDE;DOXORUBICIN;ETOPOSIDE;PREDNISONE;RITUXIMAB;VINCRI [Concomitant]
     Indication: BURKITT^S LYMPHOMA RECURRENT
     Dosage: 0.4 MG/M2, CONT OVER 24 HOURS
     Route: 042
     Dates: start: 20200131, end: 20200204
  24. CYCLOPHOSPHAMIDE;DOXORUBICIN;ETOPOSIDE;PREDNISONE;RITUXIMAB;VINCRI [Concomitant]
     Indication: BURKITT^S LYMPHOMA RECURRENT
     Dosage: 750 MG/M2
     Route: 042
     Dates: start: 20200131, end: 20200204

REACTIONS (11)
  - Off label use [None]
  - Respiratory distress [None]
  - Febrile neutropenia [None]
  - Product use in unapproved indication [None]
  - Cardiotoxicity [None]
  - Death [Fatal]
  - Cytomegalovirus infection [None]
  - Sinus tachycardia [None]
  - Supraventricular tachycardia [None]
  - Myocarditis [None]
  - Cardiac arrest [None]

NARRATIVE: CASE EVENT DATE: 20191218
